FAERS Safety Report 7808035-3 (Version None)
Quarter: 2011Q4

REPORT INFORMATION
  Report Type: 
  Country: None (occurrence: None)
  Receive Date: 20111011
  Receipt Date: 20111005
  Transmission Date: 20120403
  Serious: Yes (Death)
  Sender: FDA-Public Use
  Company Number: DE-ROXANE LABORATORIES, INC.-2011-RO-01412RO

PATIENT
  Age: 63 Year
  Sex: Male

DRUGS (4)
  1. DEXAMETHASONE [Suspect]
     Indication: PARANEOPLASTIC DERMATOMYOSITIS
     Route: 042
  2. METHYLPREDNISOLONE [Suspect]
     Indication: PARANEOPLASTIC DERMATOMYOSITIS
  3. CYCLOPHOSPHAMIDE [Suspect]
     Dosage: 50 MG
     Route: 048
  4. CYCLOPHOSPHAMIDE [Suspect]
     Indication: PARANEOPLASTIC DERMATOMYOSITIS
     Route: 042

REACTIONS (1)
  - PARANEOPLASTIC DERMATOMYOSITIS [None]
